FAERS Safety Report 19790345 (Version 1)
Quarter: 2021Q3

REPORT INFORMATION
  Report Type: Other
  Country: CH (occurrence: CH)
  Receive Date: 20210906
  Receipt Date: 20210906
  Transmission Date: 20211014
  Serious: Yes (Hospitalization)
  Sender: FDA-Public Use
  Company Number: CH-AJANTA PHARMA USA INC.-2118012

PATIENT
  Age: 50 Year
  Sex: Male

DRUGS (2)
  1. AMOXICILLIN AND CLAVULANATE POTASSIUM [Suspect]
     Active Substance: AMOXICILLIN\CLAVULANATE POTASSIUM
  2. CLARITHROMYCIN (ANDA 206714) [Suspect]
     Active Substance: CLARITHROMYCIN
     Indication: PNEUMONIA

REACTIONS (2)
  - Mania [Recovered/Resolved]
  - Drug interaction [Recovered/Resolved]
